FAERS Safety Report 8373472-8 (Version None)
Quarter: 2012Q2

REPORT INFORMATION
  Report Type: 
  Country: None (occurrence: None)
  Receive Date: 20120521
  Receipt Date: 20110620
  Transmission Date: 20120825
  Serious: No
  Sender: FDA-Public Use
  Company Number: US-TEVA-2011003159

PATIENT
  Sex: Male
  Weight: 87.168 kg

DRUGS (8)
  1. RITUXIMAB [Concomitant]
  2. CYANOCOBALAMIN [Concomitant]
  3. CALCIUM/VITAMIN D [Concomitant]
  4. TREANDA [Suspect]
     Indication: LYMPHOMA
     Route: 042
     Dates: start: 20110126, end: 20110614
  5. LISINOPRIL [Concomitant]
  6. CODEINE PHOSPHATE AND ACETAMINOPHEN [Concomitant]
  7. MAG OXALATE [Concomitant]
  8. LORTAB [Concomitant]
     Dates: start: 20080101

REACTIONS (7)
  - AGEUSIA [None]
  - NAUSEA [None]
  - HEADACHE [None]
  - PYREXIA [None]
  - INSOMNIA [None]
  - DECREASED APPETITE [None]
  - FATIGUE [None]
